FAERS Safety Report 23836623 (Version 9)
Quarter: 2024Q4

REPORT INFORMATION
  Report Type: Spontaneous
  Country: US (occurrence: US)
  Receive Date: 20240509
  Receipt Date: 20241101
  Transmission Date: 20250115
  Serious: No
  Sender: PFIZER
  Company Number: US-PFIZER INC-202400101636

PATIENT
  Age: 12 Year
  Sex: Male

DRUGS (3)
  1. GENOTROPIN [Suspect]
     Active Substance: SOMATROPIN
     Indication: Growth hormone deficiency
     Dosage: EVERY OTHER DAY BETWEEN 1.0MG AND 1.2MG, FOR PRESCRIBED DOSE OF 1.1MG
  2. GENOTROPIN [Suspect]
     Active Substance: SOMATROPIN
     Dosage: 1MG ALTERNATING WITH 1.2MG
     Dates: start: 202401
  3. GENOTROPIN [Suspect]
     Active Substance: SOMATROPIN
     Dosage: 1MG ALTERNATING WITH 1.2MG
     Dates: start: 202401

REACTIONS (4)
  - Drug dose omission by device [Unknown]
  - Device breakage [Unknown]
  - Device leakage [Unknown]
  - Device material issue [Unknown]
